FAERS Safety Report 6608248-2 (Version None)
Quarter: 2010Q1

REPORT INFORMATION
  Report Type: 
  Country: None (occurrence: None)
  Receive Date: 20100301
  Receipt Date: 20100204
  Transmission Date: 20100710
  Serious: Yes (Other)
  Sender: FDA-Public Use
  Company Number: CA-SANOFI-AVENTIS-A01200815192

PATIENT
  Age: 58 Year
  Sex: Female

DRUGS (14)
  1. CLOPIDOGREL BISULFATE [Suspect]
     Indication: MYOCARDIAL INFARCTION
     Dosage: UNIT DOSE: 75 MG
     Route: 048
     Dates: start: 20070415
  2. ASPIRIN [Interacting]
     Indication: MYOCARDIAL INFARCTION
     Route: 065
     Dates: start: 20070415
  3. ALEVE [Interacting]
     Indication: DRUG USE FOR UNKNOWN INDICATION
     Route: 065
  4. ANTIANAEMIC PREPARATIONS [Concomitant]
     Route: 042
     Dates: start: 20071024
  5. DARBEPOETIN ALFA [Concomitant]
     Dosage: DOSE:1 UNIT(S)
     Route: 042
  6. FUROSEMIDE [Concomitant]
     Indication: DRUG USE FOR UNKNOWN INDICATION
     Route: 065
     Dates: start: 20070531
  7. SEVELAMER [Concomitant]
     Indication: DRUG USE FOR UNKNOWN INDICATION
     Route: 065
     Dates: start: 20070531
  8. CALCIUM CARBONATE [Concomitant]
     Indication: DRUG USE FOR UNKNOWN INDICATION
     Route: 065
     Dates: start: 20070615
  9. SALBUTAMOL SULFATE [Concomitant]
     Indication: DRUG USE FOR UNKNOWN INDICATION
     Route: 065
     Dates: start: 20070706
  10. VENOFER [Concomitant]
     Indication: DRUG USE FOR UNKNOWN INDICATION
     Route: 065
     Dates: start: 20070912
  11. PYRIDOXINE HYDROCHLORIDE [Concomitant]
     Indication: DRUG USE FOR UNKNOWN INDICATION
     Route: 065
  12. AMLODIPINE [Concomitant]
     Indication: DRUG USE FOR UNKNOWN INDICATION
     Route: 065
  13. CLONAZEPAM [Concomitant]
     Indication: DRUG USE FOR UNKNOWN INDICATION
     Route: 065
     Dates: start: 20071015
  14. LYRICA [Concomitant]
     Indication: DRUG USE FOR UNKNOWN INDICATION
     Route: 065
     Dates: start: 20071015

REACTIONS (5)
  - ATELECTASIS [None]
  - BRONCHITIS [None]
  - HAEMATEMESIS [None]
  - HAEMOPTYSIS [None]
  - LUNG NEOPLASM [None]
